FAERS Safety Report 20205190 (Version 1)
Quarter: 2021Q4

REPORT INFORMATION
  Report Type: Spontaneous
  Country: US (occurrence: None)
  Receive Date: 20211220
  Receipt Date: 20211220
  Transmission Date: 20220304
  Serious: No
  Sender: FDA-Public Use
  Company Number: 2021A851693

PATIENT
  Age: 74 Year
  Sex: Male
  Weight: 74.8 kg

DRUGS (1)
  1. BRILINTA [Suspect]
     Active Substance: TICAGRELOR
     Route: 048
     Dates: start: 202012

REACTIONS (6)
  - Dysuria [Unknown]
  - Haemorrhage urinary tract [Unknown]
  - Epistaxis [Unknown]
  - Haemoptysis [Unknown]
  - Contusion [Unknown]
  - Product dose omission issue [Unknown]

NARRATIVE: CASE EVENT DATE: 20211111
